FAERS Safety Report 4711553-8 (Version None)
Quarter: 2005Q3

REPORT INFORMATION
  Report Type: 
  Country: None (occurrence: None)
  Receive Date: 20050708
  Receipt Date: 20050708
  Transmission Date: 20060218
  Serious: Yes (Hospitalization)
  Sender: FDA-Public Use
  Company Number: None

PATIENT
  Sex: Male

DRUGS (10)
  1. FLUDARABINE [Suspect]
     Indication: ACUTE MYELOID LEUKAEMIA
     Dosage: 70MG IV DAILY
     Route: 042
     Dates: start: 20040607, end: 20040611
  2. MELPHALAN [Suspect]
     Indication: STEM CELL TRANSPLANT
     Dosage: 320 MG IV DAILY
     Route: 042
     Dates: start: 20040612
  3. CAMPATH [Suspect]
     Dosage: 20MG IV DAILY
     Route: 042
     Dates: start: 20040607, end: 20040611
  4. BACTRIM [Concomitant]
  5. ACYCLOVIR [Concomitant]
  6. PREDNISON [Concomitant]
  7. DIFLUCAN [Concomitant]
  8. PEPCID [Concomitant]
  9. LISINOPRIL [Concomitant]
  10. COUMADIN [Concomitant]

REACTIONS (2)
  - PACEMAKER GENERATED RHYTHM [None]
  - SYNCOPE [None]
